FAERS Safety Report 6031304-7 (Version None)
Quarter: 2008Q4

REPORT INFORMATION
  Report Type: 
  Country: None (occurrence: None)
  Receive Date: 20081224
  Receipt Date: 20080811
  Transmission Date: 20090506
  Serious: No
  Sender: FDA-Public Use
  Company Number: US-CVT-080078

PATIENT
  Age: 85 Year
  Sex: Male

DRUGS (11)
  1. RANEXA [Suspect]
     Indication: ANGINA PECTORIS
     Dosage: 500 MG, BID, ORAL
     Route: 048
     Dates: start: 20080804
  2. TOPROL-XL [Concomitant]
  3. ENALAPRIL /00574901/ (ENALAPRIL) [Concomitant]
  4. NORVASC /00972401/ (AMLODIPINE) [Concomitant]
  5. ASPIRIN [Concomitant]
  6. VITAMIN D [Concomitant]
  7. METAMUCIL /00029101/ (PLANTAGO OVATA) [Concomitant]
  8. OMEPRAZOLE [Concomitant]
  9. CENTRUM SILVER (ASCORBIC ACID, CALCIUM, MINERALS NOS, RETINOL, TOCOPHE [Concomitant]
  10. SIMVASTATIN [Concomitant]
  11. GLUCOSAMINE SULFATE W/CHONDROITIN (CHONDROITIN SULFATE, GLUCOSAMINE SU [Concomitant]

REACTIONS (1)
  - ANAEMIA [None]
